FAERS Safety Report 8128074-5 (Version None)
Quarter: 2012Q1

REPORT INFORMATION
  Report Type: 
  Country: None (occurrence: None)
  Receive Date: 20120210
  Receipt Date: 20120207
  Transmission Date: 20120608
  Serious: Yes (Other)
  Sender: FDA-Public Use
  Company Number: AT-PFIZER INC-2012033974

PATIENT
  Sex: Female

DRUGS (2)
  1. CLINDAMYCIN HCL [Suspect]
     Indication: VAGINAL INFECTION
     Dosage: UNK
     Route: 067
  2. THIAMAZOLE [Concomitant]
     Indication: BASEDOW'S DISEASE
     Dosage: UNK

REACTIONS (1)
  - HYPERTHYROIDISM [None]
